FAERS Safety Report 9371715 (Version 1)
Quarter: 2013Q2

REPORT INFORMATION
  Report Type: Spontaneous
  Country: US (occurrence: US)
  Receive Date: 20130627
  Receipt Date: 20130627
  Transmission Date: 20140414
  Serious: No
  Sender: FDA-Public Use
  Company Number: US-TEVA-415182USA

PATIENT
  Age: 67 Year
  Sex: Male
  Weight: 90.8 kg

DRUGS (9)
  1. NUVIGIL [Suspect]
     Indication: NARCOLEPSY
     Dosage: 250 MILLIGRAM DAILY;
     Route: 048
     Dates: start: 20050601
  2. CARBATROL [Concomitant]
     Indication: TEMPORAL LOBE EPILEPSY
  3. ATENOLOL [Concomitant]
  4. ALFUZOSIN [Concomitant]
  5. CITRACAL [Concomitant]
  6. GARLIC [Concomitant]
  7. TUMERIC [Concomitant]
  8. COENZYME Q10 [Concomitant]
  9. L-CARNITINE [Concomitant]

REACTIONS (1)
  - Sleep disorder [Not Recovered/Not Resolved]
